FAERS Safety Report 13777684 (Version 2)
Quarter: 2017Q3

REPORT INFORMATION
  Report Type: Spontaneous
  Country: US (occurrence: US)
  Receive Date: 20170721
  Receipt Date: 20170802
  Transmission Date: 20171127
  Serious: No
  Sender: FDA-Public Use
  Company Number: US-TAKEDA-2017TUS014913

PATIENT
  Age: 39 Year
  Sex: Female
  Weight: 64.6 kg

DRUGS (3)
  1. ENTYVIO [Suspect]
     Active Substance: VEDOLIZUMAB
     Indication: COLITIS ULCERATIVE
     Dosage: 300 MG, UNK
     Route: 042
     Dates: start: 20151007
  2. ENTYVIO [Suspect]
     Active Substance: VEDOLIZUMAB
     Dosage: 300 MG, Q4WEEKS
     Route: 042
     Dates: start: 201703
  3. PREDNISONE. [Concomitant]
     Active Substance: PREDNISONE
     Indication: COLITIS ULCERATIVE
     Dosage: UNK UNK, QD
     Route: 048
     Dates: start: 20170111

REACTIONS (4)
  - Nasopharyngitis [Not Recovered/Not Resolved]
  - Lower respiratory tract infection [Unknown]
  - Alopecia [Unknown]
  - Off label use [Unknown]

NARRATIVE: CASE EVENT DATE: 201703
